FAERS Safety Report 9813731 (Version 1)
Quarter: 2014Q1

REPORT INFORMATION
  Report Type: Spontaneous
  Country: US (occurrence: None)
  Receive Date: 20140109
  Receipt Date: 20140109
  Transmission Date: 20141002
  Serious: Yes (Other)
  Sender: FDA-Public Use
  Company Number: None

PATIENT
  Age: 76 Year
  Sex: Female

DRUGS (19)
  1. ONDANSETRON [Suspect]
     Indication: NAUSEA
     Route: 042
     Dates: start: 20140107, end: 20140107
  2. ONDANSETRON [Suspect]
     Indication: VOMITING
     Route: 042
     Dates: start: 20140107, end: 20140107
  3. PRED FORTE [Concomitant]
  4. OPHTHALMIC SUSPENSION [Concomitant]
  5. OPTHAMLIC 0.5% SOLUTION [Concomitant]
  6. POM-NEPAFENAC OPTHAMLIC 0.1% SUSPENSION [Concomitant]
  7. ALDRONATE [Concomitant]
  8. ASPIRIN [Concomitant]
  9. CHOLECALCIFEROL [Concomitant]
  10. ENLAPRIL [Concomitant]
  11. HEPARIN [Concomitant]
  12. HYDROCHLOROTHIAZIDE [Concomitant]
  13. METOPROLOL TARTRATE [Concomitant]
  14. POLYVINYL ALCOHOL OPHT [Concomitant]
  15. PANTOPRAZOLE [Concomitant]
  16. PSYLLIUM SF [Concomitant]
  17. SIMVASTATIN [Concomitant]
  18. UBIQUINONES [Concomitant]
  19. TRAZODONE [Concomitant]

REACTIONS (2)
  - Injection site pain [None]
  - Injection site erythema [None]
